FAERS Safety Report 5953339-2 (Version None)
Quarter: 2008Q4

REPORT INFORMATION
  Report Type: 
  Country: None (occurrence: None)
  Receive Date: 20081031
  Receipt Date: 20080702
  Transmission Date: 20090506
  Serious: Yes (Other)
  Sender: FDA-Public Use
  Company Number: US-WYE-H04928308

PATIENT
  Age: 54 Year
  Sex: Female
  Weight: 54.48 kg

DRUGS (4)
  1. PREMARIN [Suspect]
     Indication: ATROPHIC VULVOVAGINITIS
     Dosage: 0.625MG, VAGINAL
     Route: 067
     Dates: start: 20070901, end: 20080101
  2. PREMARIN [Suspect]
     Indication: VULVITIS
     Dosage: 0.625MG, VAGINAL
     Route: 067
     Dates: start: 20070901, end: 20080101
  3. METRONIDAZOLE [Concomitant]
  4. NEXIUM [Concomitant]

REACTIONS (2)
  - DRUG INEFFECTIVE [None]
  - SKIN HYPERPIGMENTATION [None]
